FAERS Safety Report 10019008 (Version 1)
Quarter: 2014Q1

REPORT INFORMATION
  Report Type: Report from Study
  Country: US (occurrence: US)
  Receive Date: 20140318
  Receipt Date: 20140318
  Transmission Date: 20141002
  Serious: Yes (Hospitalization)
  Sender: FDA-Public Use
  Company Number: US-SA-2014SA032484

PATIENT
  Sex: 0

DRUGS (2)
  1. ANTI-THYMOCYTE GLOBULIN (RABBIT) [Suspect]
     Indication: RENAL TRANSPLANT
     Route: 065
  2. TACROLIMUS [Concomitant]

REACTIONS (1)
  - Renal impairment [Unknown]
